FAERS Safety Report 5057602-1 (Version None)
Quarter: 2006Q2

REPORT INFORMATION
  Report Type: 
  Country: None (occurrence: None)
  Receive Date: 20060622
  Receipt Date: 20050923
  Transmission Date: 20061013
  Serious: Yes (Hospitalization)
  Sender: FDA-Public Use
  Company Number: US-JNJFOC-20050906127

PATIENT
  Age: 71 Year
  Sex: Male
  Weight: 68.0396 kg

DRUGS (8)
  1. DURAGESIC-100 [Suspect]
     Indication: PAIN
     Dosage: 75 UG/HR, 1 IN 72 HOUR, TRANSDERMAL
     Route: 062
     Dates: start: 20000101, end: 20050401
  2. GABAPENTIN [Concomitant]
  3. OMEPRAZOLE [Concomitant]
  4. FELODIPINE [Concomitant]
  5. MEGESTROL ACETATE [Concomitant]
  6. SERTRALINE [Concomitant]
  7. ATENOLOL [Concomitant]
  8. BICALUTAMIDE [Concomitant]

REACTIONS (3)
  - ASTHENIA [None]
  - DRY MOUTH [None]
  - ORAL PAIN [None]
